FAERS Safety Report 4430448-0 (Version None)
Quarter: 2004Q3

REPORT INFORMATION
  Report Type: 
  Country: None (occurrence: None)
  Receive Date: 20040721
  Receipt Date: 20030604
  Transmission Date: 20050211
  Serious: Yes (Hospitalization)
  Sender: FDA-Public Use
  Company Number: WAES0305USA00202

PATIENT
  Age: 76 Year
  Sex: Male
  Weight: 113.3993 kg

DRUGS (4)
  1. VIOXX [Suspect]
     Indication: MONARTHRITIS
     Dosage: DAILY/PO
     Route: 048
     Dates: start: 20020101, end: 20021001
  2. CALAN [Concomitant]
  3. ZOLOFT [Concomitant]
  4. ASPIRIN [Concomitant]

REACTIONS (1)
  - GASTROINTESTINAL HAEMORRHAGE [None]
